FAERS Safety Report 25251692 (Version 1)
Quarter: 2025Q2

REPORT INFORMATION
  Report Type: Spontaneous
  Country: CN (occurrence: CN)
  Receive Date: 20250429
  Receipt Date: 20250429
  Transmission Date: 20250716
  Serious: Yes (Hospitalization)
  Sender: PFIZER
  Company Number: CN-PFIZER INC-PV202500050022

PATIENT
  Age: 28 Year
  Sex: Male
  Weight: 55.4 kg

DRUGS (5)
  1. CYTARABINE [Suspect]
     Active Substance: CYTARABINE
     Indication: Acute promyelocytic leukaemia
     Dosage: 0.05 G, 1X/DAY
     Route: 037
     Dates: start: 20250422, end: 20250422
  2. METHOTREXATE SODIUM [Suspect]
     Active Substance: METHOTREXATE SODIUM
     Indication: Acute promyelocytic leukaemia
     Dosage: 10 MG, 1X/DAY
     Route: 037
     Dates: start: 20250422, end: 20250422
  3. ARSENIC TRIOXIDE [Suspect]
     Active Substance: ARSENIC TRIOXIDE
     Indication: Acute promyelocytic leukaemia
     Dosage: 9 MG, 1X/DAY
     Route: 041
     Dates: start: 20250416, end: 20250424
  4. DEXAMETHASONE SODIUM PHOSPHATE [Suspect]
     Active Substance: DEXAMETHASONE SODIUM PHOSPHATE
     Indication: Acute promyelocytic leukaemia
     Dosage: 5 MG, 1X/DAY
     Route: 037
     Dates: start: 20250422, end: 20250422
  5. DEXTROSE [Concomitant]
     Active Substance: DEXTROSE MONOHYDRATE
     Indication: Acute promyelocytic leukaemia
     Dosage: 500 ML, 1X/DAY
     Route: 041
     Dates: start: 20250416, end: 20250424

REACTIONS (3)
  - Hypokalaemia [Recovering/Resolving]
  - Peripheral nerve injury [Recovering/Resolving]
  - Peripheral nerve palsy [Recovering/Resolving]

NARRATIVE: CASE EVENT DATE: 20250423
